FAERS Safety Report 21054243 (Version 2)
Quarter: 2022Q3

REPORT INFORMATION
  Report Type: Spontaneous
  Country: JP (occurrence: None)
  Receive Date: 20220707
  Receipt Date: 20220824
  Transmission Date: 20221026
  Serious: Yes (Death, Hospitalization)
  Sender: FDA-Public Use
  Company Number: 2022A224948

PATIENT
  Age: 89 Year
  Sex: Female
  Weight: 42 kg

DRUGS (19)
  1. LOKELMA [Suspect]
     Active Substance: SODIUM ZIRCONIUM CYCLOSILICATE
     Indication: Hyperkalaemia
     Route: 048
     Dates: start: 20220511, end: 20220606
  2. FUROSEMIDE [Suspect]
     Active Substance: FUROSEMIDE
     Indication: Cardiac failure congestive
     Route: 048
     Dates: end: 20220606
  3. FUROSEMIDE [Suspect]
     Active Substance: FUROSEMIDE
     Indication: Cardiac failure congestive
     Route: 048
     Dates: end: 20220606
  4. LACTULOSE [Suspect]
     Active Substance: LACTULOSE
     Route: 048
  5. LACTULOSE [Suspect]
     Active Substance: LACTULOSE
     Route: 048
  6. ASPIRIN [Concomitant]
     Active Substance: ASPIRIN
     Route: 048
  7. PRASUGREL HYDROCHLORIDE [Concomitant]
     Active Substance: PRASUGREL HYDROCHLORIDE
     Route: 048
  8. LANSOPRAZOLE [Concomitant]
     Active Substance: LANSOPRAZOLE
     Route: 048
  9. PITAVASTATIN CALCIUM [Concomitant]
     Active Substance: PITAVASTATIN CALCIUM
     Route: 048
  10. ENTRESTO [Concomitant]
     Active Substance: SACUBITRIL\VALSARTAN
     Route: 048
  11. SPIRONOLACTONE [Concomitant]
     Active Substance: SPIRONOLACTONE
     Route: 048
  12. BISOPROLOL FUMARATE [Concomitant]
     Active Substance: BISOPROLOL FUMARATE
     Route: 048
  13. SAMSCA [Concomitant]
     Active Substance: TOLVAPTAN
     Route: 048
     Dates: end: 20220525
  14. SAMSCA [Concomitant]
     Active Substance: TOLVAPTAN
     Route: 048
     Dates: start: 20220526
  15. LIMAPROST [Concomitant]
     Active Substance: LIMAPROST
     Route: 048
  16. TRESIBA [Concomitant]
     Active Substance: INSULIN DEGLUDEC
     Dosage: IN THE MORNING
     Route: 065
  17. LINAGLIPTIN [Concomitant]
     Active Substance: LINAGLIPTIN
     Route: 048
  18. GLYCOSAMINOGLYCANS [Concomitant]
     Active Substance: GLYCOSAMINOGLYCANS
     Dosage: DOSE UNKNOWN
     Route: 062
  19. FEBUXOSTAT [Concomitant]
     Active Substance: FEBUXOSTAT
     Route: 048

REACTIONS (5)
  - Cardiac failure congestive [Fatal]
  - Hypokalaemia [Recovering/Resolving]
  - Urinary tract infection [Unknown]
  - Weight increased [Unknown]
  - Decreased appetite [Unknown]

NARRATIVE: CASE EVENT DATE: 20220526
